FAERS Safety Report 17027031 (Version 1)
Quarter: 2019Q4

REPORT INFORMATION
  Report Type: Spontaneous
  Country: US (occurrence: US)
  Receive Date: 20191112
  Receipt Date: 20191112
  Transmission Date: 20200122
  Serious: Yes (Other)
  Sender: FDA-Public Use
  Company Number: None

PATIENT
  Age: 6 Week
  Sex: Male
  Weight: 5.27 kg

DRUGS (1)
  1. RANITIDINE. [Suspect]
     Active Substance: RANITIDINE
     Indication: VOMITING
     Dosage: ?          QUANTITY:60 ML;?
     Route: 048
     Dates: start: 20191031, end: 20191109

REACTIONS (4)
  - Rash [None]
  - Jaundice [None]
  - Diarrhoea [None]
  - Vomiting [None]

NARRATIVE: CASE EVENT DATE: 20191101
